FAERS Safety Report 6120404-9 (Version None)
Quarter: 2009Q1

REPORT INFORMATION
  Report Type: 
  Country: None (occurrence: None)
  Receive Date: 20090317
  Receipt Date: 20090306
  Transmission Date: 20090719
  Serious: Yes (Other)
  Sender: FDA-Public Use
  Company Number: PHHY2009BR08230

PATIENT
  Age: 75 Year
  Sex: Female

DRUGS (4)
  1. DIOVAN HCT [Suspect]
     Indication: HYPERTENSION
     Dosage: 1 DF, QD
     Route: 048
     Dates: start: 20060101
  2. HYPERIUM [Concomitant]
     Indication: HYPERTENSION
     Dosage: UNK
     Dates: start: 20060101
  3. CRESTOR [Concomitant]
     Indication: BLOOD CHOLESTEROL INCREASED
     Dosage: UNK
     Dates: start: 20080101
  4. COLPOTROFIN [Concomitant]
     Dosage: UNK
     Dates: start: 20070101

REACTIONS (4)
  - BLADDER OPERATION [None]
  - BLOOD PRESSURE INCREASED [None]
  - STRESS URINARY INCONTINENCE [None]
  - TYPE 2 DIABETES MELLITUS [None]
